FAERS Safety Report 9433358 (Version 1)
Quarter: 2013Q3

REPORT INFORMATION
  Report Type: Spontaneous
  Country: US (occurrence: US)
  Receive Date: 20130731
  Receipt Date: 20130731
  Transmission Date: 20140515
  Serious: Yes (Hospitalization)
  Sender: FDA-Public Use
  Company Number: US-ASTRAZENECA-2013SE56004

PATIENT
  Sex: Male

DRUGS (4)
  1. BRILINTA [Suspect]
     Indication: STENT PLACEMENT
     Route: 048
  2. ASPIRIN [Concomitant]
  3. BETA BLOCKER THERAPY [Concomitant]
  4. STATIN THERAPY [Concomitant]

REACTIONS (1)
  - Thrombosis in device [Unknown]
